FAERS Safety Report 5538453-8 (Version None)
Quarter: 2007Q4

REPORT INFORMATION
  Report Type: 
  Country: None (occurrence: None)
  Receive Date: 20071205
  Receipt Date: 20071121
  Transmission Date: 20080405
  Serious: Yes (Death)
  Sender: FDA-Public Use
  Company Number: RENA-12290

PATIENT
  Age: 55 Year
  Sex: Male

DRUGS (7)
  1. PHOSBLOCK 250 MG TABLETS. MFR: KIRIN BREWERY [Suspect]
     Indication: HYPERPHOSPHATAEMIA
     Dosage: 0.75 G DAILY; PO
     Route: 048
     Dates: start: 20060411, end: 20060707
  2. PRECIPIATED CALCIUM CARBONATE [Concomitant]
  3. ASPIRIN [Concomitant]
  4. CANDESARTAN CILEXETIL [Concomitant]
  5. FAMOTIDINE [Concomitant]
  6. TICLOPIDINE HYDROCHLORIDE [Concomitant]
  7. AMLODIPINE BESYLATE [Concomitant]

REACTIONS (5)
  - ANOREXIA [None]
  - BLOOD ALKALINE PHOSPHATASE INCREASED [None]
  - CONDITION AGGRAVATED [None]
  - DIABETES MELLITUS [None]
  - DIABETIC NEPHROPATHY [None]
